FAERS Safety Report 21657406 (Version 1)
Quarter: 2022Q4

REPORT INFORMATION
  Report Type: Spontaneous
  Country: ES (occurrence: ES)
  Receive Date: 20221129
  Receipt Date: 20221129
  Transmission Date: 20230113
  Serious: Yes (Hospitalization, Other)
  Sender: FDA-Public Use
  Company Number: ES-OTSUKA-2022_052694

PATIENT
  Age: 18 Year
  Sex: Male

DRUGS (1)
  1. ARIPIPRAZOLE [Suspect]
     Active Substance: ARIPIPRAZOLE
     Indication: Major depression
     Dosage: 15 MG
     Route: 065

REACTIONS (11)
  - Suicide threat [Unknown]
  - Psychotic symptom [Unknown]
  - Feeling abnormal [Unknown]
  - Hallucination, auditory [Unknown]
  - Aggression [Unknown]
  - Suicidal ideation [Unknown]
  - Affective disorder [Unknown]
  - Dysphoria [Unknown]
  - Depression [Unknown]
  - Anxiety [Unknown]
  - Product use in unapproved indication [Unknown]
